FAERS Safety Report 4520991-8 (Version None)
Quarter: 2004Q4

REPORT INFORMATION
  Report Type: 
  Country: None (occurrence: None)
  Receive Date: 20041206
  Receipt Date: 20041118
  Transmission Date: 20050328
  Serious: Yes (Hospitalization)
  Sender: FDA-Public Use
  Company Number: 9342

PATIENT
  Age: 39 Year
  Sex: Male

DRUGS (6)
  1. LEUCOVORIN CALCIUM [Suspect]
     Indication: GASTRIC CANCER
     Dosage: 80 MG IV
     Route: 042
     Dates: start: 20040907, end: 20040914
  2. FLUOROURACIL [Suspect]
     Indication: GASTRIC CANCER
     Dosage: 4400 MG IV
     Route: 042
     Dates: start: 20040907, end: 20040914
  3. IRINOTECAN [Suspect]
     Indication: GASTRIC CANCER
     Dosage: 160 MG IV
     Route: 042
     Dates: start: 20040907, end: 20040914
  4. PANTOPRAZOLE SODIUM [Concomitant]
  5. DOMPERIDONE [Concomitant]
  6. MORPHINE SULFATE [Concomitant]

REACTIONS (3)
  - DRUG INTERACTION POTENTIATION [None]
  - ENTEROCOLITIS HAEMORRHAGIC [None]
  - INTESTINAL ULCER [None]
